FAERS Safety Report 9766877 (Version 1)
Quarter: 2013Q4

REPORT INFORMATION
  Report Type: Spontaneous
  Country: US (occurrence: None)
  Receive Date: 20131216
  Receipt Date: 20131216
  Transmission Date: 20140711
  Serious: Yes (Death)
  Sender: FDA-Public Use
  Company Number: None

PATIENT
  Age: 71 Year
  Sex: Female

DRUGS (1)
  1. XELODA 500MG GENENTECH [Suspect]
     Indication: HEPATIC CANCER
     Dosage: 2 TAB BID FOR 7 DAYS ON/OFF ORAL
     Dates: start: 20131008

REACTIONS (3)
  - Death [None]
  - Disease progression [None]
  - Unevaluable event [None]
